FAERS Safety Report 5677354-1 (Version None)
Quarter: 2008Q1

REPORT INFORMATION
  Report Type: 
  Country: None (occurrence: None)
  Receive Date: 20080320
  Receipt Date: 20080320
  Transmission Date: 20080703
  Serious: Yes (Other)
  Sender: FDA-Public Use
  Company Number: None

PATIENT
  Age: 59 Year
  Sex: Female
  Weight: 81.6475 kg

DRUGS (4)
  1. LYRICA [Suspect]
     Indication: FIBROMYALGIA
     Dates: start: 20070601, end: 20080319
  2. AMBIEN [Concomitant]
  3. CYMBALTA [Concomitant]
  4. METHADON HCL TAB [Concomitant]

REACTIONS (2)
  - MOBILITY DECREASED [None]
  - OEDEMA PERIPHERAL [None]
